FAERS Safety Report 9490737 (Version 1)
Quarter: 2013Q3

REPORT INFORMATION
  Report Type: Spontaneous
  Country: US (occurrence: US)
  Receive Date: 20130830
  Receipt Date: 20130830
  Transmission Date: 20140515
  Serious: Yes (Other)
  Sender: FDA-Public Use
  Company Number: US-JNJCP-30000176666

PATIENT
  Sex: Female
  Weight: 66 kg

DRUGS (4)
  1. AVEENO ULTRA-CALMING FOAMING CLEANSER [Suspect]
     Indication: REMOVAL OF INERT MATTER FROM SKIN OR SUBCUTANEOUS TISSUE
     Dosage: ONE PUMP, ONCE
     Route: 061
     Dates: start: 20130813, end: 20130813
  2. BIRTH CONTROL PILL PRESCRIPTION [Concomitant]
     Indication: CONTRACEPTION
     Dosage: ONE DOSE, SINCE TWENTY YEARS
  3. AVEENO POSITIVELY RADIANT INTENSIVE NIGHT CREAM [Suspect]
     Indication: DRY SKIN PROPHYLAXIS
     Dosage: A DAB SIZE AMOUNT ON FINGER TIP, ONCE
     Route: 061
     Dates: start: 20130812, end: 20130812
  4. AVEENO CLEAR COMPLEXION DAILY CLEANSING PADS [Suspect]
     Indication: REMOVAL OF INERT MATTER FROM SKIN OR SUBCUTANEOUS TISSUE
     Dosage: ONE PAD, ONCE
     Route: 061
     Dates: start: 20130812, end: 20130812

REACTIONS (2)
  - Application site reaction [Recovered/Resolved]
  - Hypersensitivity [Recovered/Resolved]
